FAERS Safety Report 14729557 (Version 1)
Quarter: 2018Q2

REPORT INFORMATION
  Report Type: Spontaneous
  Country: US (occurrence: US)
  Receive Date: 20180402
  Receipt Date: 20180402
  Transmission Date: 20180711
  Serious: Yes (Death)
  Sender: FDA-Public Use
  Company Number: None

PATIENT
  Age: 55 Year
  Sex: Female

DRUGS (3)
  1. TAGAMET [Concomitant]
     Active Substance: CIMETIDINE
  2. VITAMIN C [Concomitant]
     Active Substance: ASCORBIC ACID
  3. LONSURF [Suspect]
     Active Substance: TIPIRACIL HYDROCHLORIDE\TRIFLURIDINE
     Indication: COLON CANCER
     Dosage: 60/24.57 MG TID, DS 1-5 + 8-12 PO
     Route: 048
     Dates: start: 20180206, end: 20180316

REACTIONS (1)
  - Death [None]

NARRATIVE: CASE EVENT DATE: 20180316
